FAERS Safety Report 5488154-X (Version None)
Quarter: 2007Q4

REPORT INFORMATION
  Report Type: 
  Country: None (occurrence: None)
  Receive Date: 20071001
  Receipt Date: 20070501
  Transmission Date: 20080405
  Serious: Yes (Other)
  Sender: FDA-Public Use
  Company Number: 2007050009

PATIENT
  Age: 3 Year
  Sex: Male
  Weight: 18 kg

DRUGS (2)
  1. FELBATOL [Suspect]
     Indication: LENNOX-GASTAUT SYNDROME
     Dosage: 8 MILLILITER (4 MILLILITER, 2 IN 1 D), PO
     Route: 048
     Dates: start: 20060614, end: 20060820
  2. KEPPRA [Concomitant]

REACTIONS (2)
  - DRUG INEFFECTIVE [None]
  - NEUTROPENIA [None]
